FAERS Safety Report 6237716-0 (Version None)
Quarter: 2009Q2

REPORT INFORMATION
  Report Type: 
  Country: None (occurrence: None)
  Receive Date: 20090617
  Receipt Date: 20090617
  Transmission Date: 20091009
  Serious: Yes (Other)
  Sender: FDA-Public Use
  Company Number: None

PATIENT
  Age: 15 Year
  Sex: Female

DRUGS (1)
  1. BASIRON AC WASH (BENZOYL PEROXIDE) 5% [Suspect]
     Indication: ACNE
     Dosage: (1 DF TOPICAL)
     Route: 061
     Dates: start: 20090529, end: 20090529

REACTIONS (4)
  - ACCIDENTAL EXPOSURE [None]
  - EYE IRRITATION [None]
  - EYE PAIN [None]
  - OCULAR HYPERAEMIA [None]
